FAERS Safety Report 5422964-X (Version None)
Quarter: 2007Q3

REPORT INFORMATION
  Report Type: 
  Country: None (occurrence: None)
  Receive Date: 20070820
  Receipt Date: 20070803
  Transmission Date: 20080115
  Serious: Yes (Other)
  Sender: FDA-Public Use
  Company Number: 2007RR-07124

PATIENT
  Age: 66 Year
  Sex: Male

DRUGS (4)
  1. FLUOXETINE [Suspect]
     Dosage: 10 MG, QD, ORAL
     Route: 048
     Dates: start: 19940801
  2. CHLORDIAZEPOXIDE (CLORDIAZEPOXIDE) [Concomitant]
  3. CLONAZEPAM [Concomitant]
  4. DOXEPIN HCL [Concomitant]

REACTIONS (6)
  - DELUSION [None]
  - FEAR [None]
  - HOMICIDE [None]
  - PSYCHOTIC DISORDER [None]
  - SUSPICIOUSNESS [None]
  - TENSION [None]
